FAERS Safety Report 23772072 (Version 1)
Quarter: 2024Q2

REPORT INFORMATION
  Report Type: Spontaneous
  Country: DE (occurrence: DE)
  Receive Date: 20240423
  Receipt Date: 20240423
  Transmission Date: 20240716
  Serious: No
  Sender: FDA-Public Use
  Company Number: DE-ALKEM LABORATORIES LIMITED-DE-ALKEM-2024-05560

PATIENT
  Age: 16 Year
  Sex: Female
  Weight: 43 kg

DRUGS (8)
  1. LACOSAMIDE [Interacting]
     Active Substance: LACOSAMIDE
     Indication: Epilepsy
     Dosage: 300 MILLIGRAM, QD
     Route: 048
  2. LEVETIRACETAM [Interacting]
     Active Substance: LEVETIRACETAM
     Indication: Epilepsy
     Dosage: 500 MILLIGRAM, QD
     Route: 048
  3. FYCOMPA [Interacting]
     Active Substance: PERAMPANEL
     Indication: Epilepsy
     Dosage: 6 MILLIGRAM, QD (5 MONTHS)
     Route: 048
  4. FYCOMPA [Interacting]
     Active Substance: PERAMPANEL
     Dosage: 4 MILLIGRAM, QD (5 MONTHS)
     Route: 048
  5. FYCOMPA [Interacting]
     Active Substance: PERAMPANEL
     Dosage: 6 MILLIGRAM, QD (5 MONTHS)
     Route: 048
  6. VALPROATE [Interacting]
     Active Substance: VALPROIC ACID
     Indication: Epilepsy
     Dosage: 1500 MILLIGRAM, QD (3 YEARS)
     Route: 048
  7. VALPROATE [Interacting]
     Active Substance: VALPROIC ACID
     Dosage: 900 MILLIGRAM, QD (3 YEARS)
     Route: 048
  8. METHYLPHENIDATE [Concomitant]
     Active Substance: METHYLPHENIDATE
     Indication: Disturbance in attention
     Dosage: 25 MILLIGRAM, QD
     Route: 048

REACTIONS (7)
  - Drug interaction [Unknown]
  - Apathy [Recovering/Resolving]
  - Slow speech [Recovering/Resolving]
  - Depressed mood [Unknown]
  - Vertigo [Recovering/Resolving]
  - Fatigue [Unknown]
  - Gait disturbance [Unknown]

NARRATIVE: CASE EVENT DATE: 20190301
